FAERS Safety Report 7238322-1 (Version None)
Quarter: 2011Q1

REPORT INFORMATION
  Report Type: 
  Country: None (occurrence: None)
  Receive Date: 20110121
  Receipt Date: 20110113
  Transmission Date: 20110831
  Serious: Yes (Other)
  Sender: FDA-Public Use
  Company Number: CA-JNJFOC-20110104116

PATIENT
  Sex: Female
  Weight: 70 kg

DRUGS (2)
  1. SOLU-CORTEF [Concomitant]
     Indication: PREMEDICATION
     Route: 042
  2. REMICADE [Suspect]
     Indication: CROHN'S DISEASE
     Dosage: WITHDRAWN FOR 20 WEEKS
     Route: 042

REACTIONS (1)
  - LYMPHOMA [None]
